FAERS Safety Report 8907023 (Version 5)
Quarter: 2013Q4

REPORT INFORMATION
  Report Type: Report from Study
  Country: US (occurrence: US)
  Receive Date: 20121114
  Receipt Date: 20131113
  Transmission Date: 20140711
  Serious: Yes (Hospitalization, Other)
  Sender: FDA-Public Use
  Company Number: US-TEVA-369715USA

PATIENT
  Age: 41 Year
  Sex: Female

DRUGS (28)
  1. FLUOROURACIL [Suspect]
     Indication: NEOPLASM
     Dosage: OVER DAYS 1-3 AND 15-17 OF EACH 28 DAY CYCLE
     Route: 042
     Dates: start: 20120910, end: 20121008
  2. FOLINIC ACID [Suspect]
     Dosage: DAY 1 AND DAY 15 EACH 28 DAY CYCLE
     Dates: start: 20120910, end: 20121011
  3. ABT-888 [Suspect]
     Indication: NEOPLASM
     Dosage: 200 MILLIGRAM DAILY; DAYS 1-5 AND 15-19 EVERY 28 DAYS (2 IN 1 DAY)
     Route: 048
     Dates: start: 20121008, end: 20121011
  4. IRINOTECAN [Suspect]
     Indication: NEOPLASM
     Dosage: DAY 1 AND DAY 15 OF EACH 28 DAY CYCLE
     Route: 042
     Dates: start: 20120924, end: 20121008
  5. SENOKOT-S [Concomitant]
     Indication: CONSTIPATION
     Dates: start: 2012, end: 20120914
  6. COLACE [Concomitant]
     Indication: CONSTIPATION
     Dates: start: 2012
  7. MAGNESIUM OXIDE [Concomitant]
     Indication: HYPOMAGNESAEMIA
     Dosage: 250 MILLIGRAM DAILY;
     Dates: start: 2012
  8. HYDROCODONE [Concomitant]
     Indication: ABDOMINAL PAIN
     Dates: start: 2012
  9. CEFALEXIN [Concomitant]
     Indication: PROPHYLAXIS
     Dosage: 2000 MILLIGRAM DAILY;
     Dates: start: 20120822, end: 20120910
  10. REGLAN [Concomitant]
     Indication: PROPHYLAXIS
     Dosage: 40 MILLIGRAM DAILY;
     Dates: start: 2012, end: 20120914
  11. MIRALAX [Concomitant]
     Indication: CONSTIPATION
     Dosage: 1 CAPFUL DAILY
     Dates: start: 20120917
  12. ZOFRAN [Concomitant]
     Indication: PROPHYLAXIS
     Dosage: 8 MILLIGRAM DAILY;
     Dates: start: 20120910
  13. DECADRON [Concomitant]
     Indication: PROPHYLAXIS
     Dosage: 2 MG AS REQUIRED
     Dates: start: 20120914
  14. COMPAZINE [Concomitant]
     Indication: PROPHYLAXIS
     Dosage: AS REQUIRED
     Dates: start: 20120910
  15. PRILOSEC [Concomitant]
     Indication: PROPHYLAXIS
     Dosage: 20 MILLIGRAM DAILY;
     Dates: start: 20120906
  16. PRILOSEC [Concomitant]
     Indication: PROPHYLAXIS
  17. LACTALOSE [Concomitant]
     Indication: CONSTIPATION
     Dates: start: 20120906
  18. IMODIUM [Concomitant]
     Indication: DIARRHOEA
     Dosage: 2 TABLETS AS REQUIRED
     Dates: start: 20120919
  19. NORVASC [Concomitant]
     Indication: HYPERTENSION
     Dosage: 5 MILLIGRAM DAILY;
     Dates: start: 20120903
  20. MIRENA [Concomitant]
     Indication: CONTRACEPTION
     Dosage: 1 UNIT
     Dates: start: 2012
  21. SPIRONOLACTONE [Concomitant]
     Indication: ASCITES
     Dosage: 50 MILLIGRAM DAILY;
     Dates: start: 20120906
  22. CARAFATE [Concomitant]
     Indication: GASTROOESOPHAGEAL REFLUX DISEASE
     Dosage: 4 DOSAGE FORMS DAILY; 2 TABLESPOON=1 DOSE
     Dates: start: 20121017
  23. MAALOX [Concomitant]
     Indication: CONSTIPATION
     Dosage: 2 TABLESPOON AS REQUIRED
     Dates: start: 20120920
  24. LEUPRORELIN ACETATE [Concomitant]
     Indication: CONTRACEPTION
     Dates: start: 20120919
  25. OXYCODONE [Concomitant]
     Indication: ABDOMINAL PAIN
     Dosage: 40 MILLIGRAM DAILY;
     Dates: start: 20121017
  26. DAPTOMYCIN [Concomitant]
     Indication: FEBRILE NEUTROPENIA
     Dates: start: 20121020, end: 20121029
  27. OXYCODONE/APAP [Concomitant]
     Indication: ABDOMINAL PAIN
     Dosage: 6 DOSAGE FORMS DAILY;
     Dates: start: 20121001, end: 20121017
  28. MAALOX [Concomitant]
     Indication: CONSTIPATION
     Dosage: 2 TBSP (AS REQUIRED)
     Dates: start: 20120920

REACTIONS (2)
  - Febrile neutropenia [Recovered/Resolved]
  - Dyspnoea [Recovered/Resolved]
